FAERS Safety Report 10093988 (Version 2)
Quarter: 2014Q2

REPORT INFORMATION
  Report Type: Spontaneous
  Country: JP (occurrence: JP)
  Receive Date: 20140421
  Receipt Date: 20140507
  Transmission Date: 20141212
  Serious: No
  Sender: FDA-Public Use
  Company Number: JP-ROCHE-1384852

PATIENT
  Age: 65 Year
  Sex: Male
  Weight: 61 kg

DRUGS (14)
  1. AVASTIN [Suspect]
     Indication: RECTOSIGMOID CANCER
     Dosage: DAY1
     Route: 041
     Dates: start: 20120207, end: 20120207
  2. AVASTIN [Suspect]
     Indication: RECTOSIGMOID CANCER
     Dosage: DAY1?FOUR COURSES
     Route: 041
  3. ELPLAT [Suspect]
     Indication: RECTOSIGMOID CANCER
     Dosage: DAY1
     Route: 041
  4. ELPLAT [Suspect]
     Indication: RECTOSIGMOID CANCER
     Dosage: DAY1?FOUR COURSES
     Route: 041
  5. ELPLAT [Suspect]
     Indication: RECTOSIGMOID CANCER
     Dosage: DOSAGE IS UNCERTAIN. ?ONE COURSE
     Route: 041
  6. ELPLAT [Suspect]
     Indication: ADJUVANT THERAPY
     Dosage: DOSAGE IS UNCERTAIN. ?THREE COURSES
     Route: 041
  7. XELODA [Suspect]
     Indication: RECTOSIGMOID CANCER
     Dosage: DAY1-14?FOUR COURSES
     Route: 048
  8. XELODA [Suspect]
     Indication: RECTOSIGMOID CANCER
     Dosage: DAY1-14?FOUR COURSES
     Route: 048
  9. XELODA [Suspect]
     Indication: RECTOSIGMOID CANCER
     Dosage: DOSAGE IS UNCERTAIN. ?ONE COURSE
     Route: 048
  10. XELODA [Suspect]
     Indication: ADJUVANT THERAPY
     Dosage: DOSAGE IS UNCERTAIN. ?THREE COURSES
     Route: 048
  11. XELODA [Suspect]
     Indication: ADJUVANT THERAPY
     Dosage: DOSAGE IS UNCERTAIN. ?FOUR COURSES
     Route: 048
  12. 5-FU [Suspect]
     Indication: RECTOSIGMOID CANCER
     Dosage: DAY1
     Route: 040
  13. 5-FU [Suspect]
     Indication: RECTOSIGMOID CANCER
     Dosage: DAY1-2
     Route: 041
  14. CALCIUM LEVOFOLINATE [Suspect]
     Indication: RECTOSIGMOID CANCER
     Dosage: DAY1
     Route: 041

REACTIONS (3)
  - Device related infection [Recovering/Resolving]
  - Palmar-plantar erythrodysaesthesia syndrome [Recovered/Resolved]
  - Hypersensitivity [Recovered/Resolved]
